FAERS Safety Report 13882881 (Version 1)
Quarter: 2017Q3

REPORT INFORMATION
  Report Type: Spontaneous
  Country: US (occurrence: US)
  Receive Date: 20170818
  Receipt Date: 20170818
  Transmission Date: 20171127
  Serious: Yes (Hospitalization, Other)
  Sender: FDA-Public Use
  Company Number: US-PFIZER INC-2017358904

PATIENT
  Age: 65 Year
  Sex: Female
  Weight: 71 kg

DRUGS (3)
  1. TIKOSYN [Suspect]
     Active Substance: DOFETILIDE
     Indication: ATRIAL FIBRILLATION
     Dosage: 500 UG, 2X/DAY
     Route: 048
     Dates: start: 20140529
  2. METOPROLOL SUCCINATE. [Concomitant]
     Active Substance: METOPROLOL SUCCINATE
     Indication: ATRIAL FIBRILLATION
     Dosage: 100 MG, 1X/DAY
     Dates: start: 20150521
  3. ELIQUIS [Concomitant]
     Active Substance: APIXABAN
     Indication: ATRIAL FIBRILLATION
     Dosage: 5 MG, 2X/DAY
     Dates: start: 20150127

REACTIONS (5)
  - Atrial fibrillation [Recovered/Resolved]
  - Atrial fibrillation [Unknown]
  - Long QT syndrome [Not Recovered/Not Resolved]
  - Electrocardiogram QRS complex prolonged [Unknown]
  - Atrial flutter [Unknown]

NARRATIVE: CASE EVENT DATE: 20170123
